FAERS Safety Report 16065311 (Version 1)
Quarter: 2019Q1

REPORT INFORMATION
  Report Type: Spontaneous
  Country: GB (occurrence: GB)
  Receive Date: 20190313
  Receipt Date: 20190313
  Transmission Date: 20190418
  Serious: Yes (Hospitalization)
  Sender: FDA-Public Use
  Company Number: GB-ACCORD-111974

PATIENT
  Age: 74 Year
  Sex: Female

DRUGS (5)
  1. QUININE [Concomitant]
     Active Substance: QUININE
     Dosage: AT NIGHT
  2. ATORVASTATIN/ATORVASTATIN CALCIUM [Suspect]
     Active Substance: ATORVASTATIN CALCIUM
     Indication: PRODUCT USED FOR UNKNOWN INDICATION
  3. DEMECLOCYCLINE/DEMECLOCYCLINE HYDROCHLORIDE [Suspect]
     Active Substance: DEMECLOCYCLINE HYDROCHLORIDE
     Indication: PRODUCT USED FOR UNKNOWN INDICATION
  4. AMLODIPINE [Concomitant]
     Active Substance: AMLODIPINE BESYLATE
  5. FOLIC ACID. [Concomitant]
     Active Substance: FOLIC ACID

REACTIONS (2)
  - Liver function test abnormal [Unknown]
  - Acute kidney injury [Unknown]
